FAERS Safety Report 16441686 (Version 1)
Quarter: 2019Q2

REPORT INFORMATION
  Report Type: Spontaneous
  Country: US (occurrence: US)
  Receive Date: 20190617
  Receipt Date: 20190617
  Transmission Date: 20190711
  Serious: Yes (Hospitalization)
  Sender: FDA-Public Use
  Company Number: US-US WORLDMEDS, LLC-USW201805-000743

PATIENT
  Age: 84 Year
  Sex: Female
  Weight: 73.02 kg

DRUGS (13)
  1. LIPITOR [Concomitant]
     Active Substance: ATORVASTATIN CALCIUM
  2. FUROSEMIDE. [Concomitant]
     Active Substance: FUROSEMIDE
  3. SINEMET [Concomitant]
     Active Substance: CARBIDOPA\LEVODOPA
  4. AMLODIPINE [Concomitant]
     Active Substance: AMLODIPINE BESYLATE
  5. ELIQUIS [Concomitant]
     Active Substance: APIXABAN
  6. ROPINIROLE. [Concomitant]
     Active Substance: ROPINIROLE
  7. PAROXETINE. [Concomitant]
     Active Substance: PAROXETINE
  8. APOKYN [Suspect]
     Active Substance: APOMORPHINE HYDROCHLORIDE
     Indication: PARKINSON^S DISEASE
     Route: 058
     Dates: start: 20180418, end: 20180505
  9. ATENOLOL. [Concomitant]
     Active Substance: ATENOLOL
  10. ASA [Concomitant]
     Active Substance: ASPIRIN
  11. COMTAN [Concomitant]
     Active Substance: ENTACAPONE
  12. LISINOPRIL. [Concomitant]
     Active Substance: LISINOPRIL
  13. ISOSORBIDE MONONITRATE. [Concomitant]
     Active Substance: ISOSORBIDE MONONITRATE

REACTIONS (2)
  - Dehydration [Unknown]
  - Fall [Unknown]

NARRATIVE: CASE EVENT DATE: 20180505
